FAERS Safety Report 23550658 (Version 1)
Quarter: 2024Q1

REPORT INFORMATION
  Report Type: Report from Study
  Country: GB (occurrence: GB)
  Receive Date: 20240221
  Receipt Date: 20240221
  Transmission Date: 20240410
  Serious: Yes (Other)
  Sender: FDA-Public Use
  Company Number: GB-002147023-NVSC2022GB100464

PATIENT
  Sex: Female

DRUGS (1)
  1. ERELZI [Suspect]
     Active Substance: ETANERCEPT-SZZS
     Indication: Rheumatoid arthritis
     Dosage: 50MG/1M QW
     Route: 058

REACTIONS (5)
  - Intestinal perforation [Unknown]
  - Dizziness [Recovered/Resolved]
  - Contusion [Not Recovered/Not Resolved]
  - Headache [Recovered/Resolved]
  - Product dose omission issue [Unknown]
